FAERS Safety Report 8958528 (Version 2)
Quarter: 2012Q4

REPORT INFORMATION
  Report Type: Spontaneous
  Country: PL (occurrence: None)
  Receive Date: 20121115
  Receipt Date: 20121115
  Transmission Date: 20130627
  Serious: Yes (Hospitalization)
  Sender: FDA-Public Use
  Company Number: 2012033906

PATIENT
  Age: 34 Year
  Sex: Female

DRUGS (1)
  1. BERINERT [Suspect]
     Indication: C1 ESTERASE INHIBITOR DEFICIENCY
     Dosage: 900 IU, infusion rate: 4mL/min Intravenous (not otherwise specified)
     Dates: start: 20120808

REACTIONS (1)
  - Hereditary angioedema [None]
